FAERS Safety Report 22925380 (Version 2)
Quarter: 2023Q4

REPORT INFORMATION
  Report Type: Spontaneous
  Country: JP (occurrence: None)
  Receive Date: 20230908
  Receipt Date: 20231010
  Transmission Date: 20240110
  Serious: Yes (Death, Hospitalization, Other)
  Sender: FDA-Public Use
  Company Number: 2023A205679

PATIENT
  Age: 66 Year
  Sex: Male

DRUGS (5)
  1. BICALUTAMIDE [Suspect]
     Active Substance: BICALUTAMIDE
     Indication: Prostate cancer
     Route: 048
  2. OLAPARIB [Suspect]
     Active Substance: OLAPARIB
     Indication: Prostate cancer
     Route: 048
  3. DOCETAXEL [Concomitant]
     Active Substance: DOCETAXEL
     Dosage: 60 MG/M2 EVERY 4 WEEKS, FOUR CYCLES
  4. CARBOPLATIN [Concomitant]
     Active Substance: CARBOPLATIN
     Dosage: 60 MG/M2 EVERY 4 WEEKS, FOUR CYCLES
  5. ETOPOSIDE [Concomitant]
     Active Substance: ETOPOSIDE
     Dosage: 80 MG/ML, DAYS

REACTIONS (9)
  - Malignant neoplasm progression [Fatal]
  - Drug resistance [Unknown]
  - Treatment failure [Unknown]
  - Metastases to lung [Unknown]
  - Metastases to liver [Unknown]
  - Metastases to bone [Unknown]
  - Stomatitis [Unknown]
  - Anaemia [Unknown]
  - Fatigue [Unknown]
